FAERS Safety Report 7929952-X (Version None)
Quarter: 2011Q4

REPORT INFORMATION
  Report Type: 
  Country: None (occurrence: None)
  Receive Date: 20111117
  Receipt Date: 20111107
  Transmission Date: 20120403
  Serious: Yes (Hospitalization)
  Sender: FDA-Public Use
  Company Number: 1103586

PATIENT
  Age: 63 Year
  Sex: Male

DRUGS (2)
  1. FENTANYL CITRATE [Suspect]
     Indication: FLANK PAIN
     Dosage: 1,000 MICROGRAMS
  2. FENTANYL CITRATE [Suspect]
     Indication: BACK PAIN
     Dosage: 1,000 MICROGRAMS

REACTIONS (4)
  - METASTASES TO BONE [None]
  - HYPERAESTHESIA [None]
  - BACK PAIN [None]
  - FLANK PAIN [None]
